FAERS Safety Report 5476556-7 (Version None)
Quarter: 2007Q3

REPORT INFORMATION
  Report Type: 
  Country: None (occurrence: None)
  Receive Date: 20070926
  Receipt Date: 20070522
  Transmission Date: 20080115
  Serious: Yes (Other)
  Sender: FDA-Public Use
  Company Number: 2007041586

PATIENT

DRUGS (1)
  1. ZYRTEC [Suspect]

REACTIONS (2)
  - URINARY INCONTINENCE [None]
  - URINE OUTPUT INCREASED [None]
